FAERS Safety Report 5477803-8 (Version None)
Quarter: 2007Q4

REPORT INFORMATION
  Report Type: 
  Country: None (occurrence: None)
  Receive Date: 20071004
  Receipt Date: 20070927
  Transmission Date: 20080405
  Serious: Yes (Hospitalization)
  Sender: FDA-Public Use
  Company Number: FR-ASTRAZENECA-2007CG01379

PATIENT
  Age: 79 Year
  Sex: Male

DRUGS (1)
  1. INEXIUM [Suspect]
     Indication: GASTRIC ULCER
     Route: 048
     Dates: start: 20070301, end: 20070723

REACTIONS (2)
  - MYALGIA [None]
  - PARAPARESIS [None]
